FAERS Safety Report 18399273 (Version 2)
Quarter: 2020Q4

REPORT INFORMATION
  Report Type: Spontaneous
  Country: US (occurrence: US)
  Receive Date: 20201019
  Receipt Date: 20201211
  Transmission Date: 20210114
  Serious: No
  Sender: FDA-Public Use
  Company Number: US-CELGENEUS-USA-20201004335

PATIENT
  Age: 45 Year
  Sex: Male

DRUGS (6)
  1. PREDNISONE. [Concomitant]
     Active Substance: PREDNISONE
     Indication: PRODUCT USED FOR UNKNOWN INDICATION
     Route: 048
     Dates: start: 20200924
  2. THALOMID [Suspect]
     Active Substance: THALIDOMIDE
     Indication: OFF LABEL USE
     Dosage: 100-50 MG
     Route: 048
     Dates: start: 20190812
  3. THALOMID [Suspect]
     Active Substance: THALIDOMIDE
     Dosage: UNKNOWN
     Route: 048
     Dates: start: 2020
  4. DAPSONE. [Concomitant]
     Active Substance: DAPSONE
     Indication: PRODUCT USED FOR UNKNOWN INDICATION
     Route: 048
     Dates: start: 20191220
  5. THALOMID [Suspect]
     Active Substance: THALIDOMIDE
     Indication: ERYTHEMA MULTIFORME
     Dosage: 100 MILLIGRAM
     Route: 048
     Dates: start: 201805
  6. THALOMID [Suspect]
     Active Substance: THALIDOMIDE
     Indication: LEPROMATOUS LEPROSY
     Dosage: 200-100 MG
     Route: 048
     Dates: start: 201811

REACTIONS (1)
  - Laboratory test abnormal [Recovered/Resolved]

NARRATIVE: CASE EVENT DATE: 20201014
